FAERS Safety Report 6551138-4 (Version None)
Quarter: 2010Q1

REPORT INFORMATION
  Report Type: 
  Country: None (occurrence: None)
  Receive Date: 20100121
  Receipt Date: 20100104
  Transmission Date: 20100710
  Serious: Yes (Death, Other)
  Sender: FDA-Public Use
  Company Number: 2010AP000027

PATIENT
  Age: 40 Year
  Sex: Male

DRUGS (10)
  1. CITALOPRAM HYDROBROMIDE [Suspect]
  2. AMITRIPTYLINE HYDROCHLORIDE [Suspect]
  3. CODEINE SUL TAB [Suspect]
  4. DIAZEPAM [Suspect]
  5. MORPHINE [Suspect]
  6. NORDAZEPAM (NORDAZEPAM) [Suspect]
  7. OXYCODONE HCL [Suspect]
  8. TEMAZEPAM [Suspect]
  9. HEROIN (DIAMORPHINE) [Concomitant]
  10. METHAMPHETAMINE HYDROCHLORIDE [Concomitant]

REACTIONS (4)
  - DRUG TOXICITY [None]
  - MALAISE [None]
  - MULTIPLE DRUG OVERDOSE INTENTIONAL [None]
  - UNRESPONSIVE TO STIMULI [None]
